FAERS Safety Report 4679906-4 (Version None)
Quarter: 2005Q2

REPORT INFORMATION
  Report Type: 
  Country: None (occurrence: None)
  Receive Date: 20050602
  Receipt Date: 20050519
  Transmission Date: 20051028
  Serious: Yes (Other)
  Sender: FDA-Public Use
  Company Number: 2005-05-0528

PATIENT
  Age: 87 Year
  Sex: Male
  Weight: 97 kg

DRUGS (4)
  1. ASPIRIN [Suspect]
     Indication: DRUG USE FOR UNKNOWN INDICATION
     Route: 065
     Dates: start: 20050509
  2. HEPARIN [Suspect]
     Indication: DRUG USE FOR UNKNOWN INDICATION
     Route: 065
     Dates: start: 20050509
  3. CLOPIDOGREL BISULFATE [Suspect]
     Indication: DRUG USE FOR UNKNOWN INDICATION
     Route: 065
     Dates: start: 20050509
  4. INTEGRILIN [Concomitant]
     Indication: THERAPEUTIC PROCEDURE
     Route: 042
     Dates: start: 20050509, end: 20050510

REACTIONS (5)
  - HAEMATOCRIT DECREASED [None]
  - HAEMOGLOBIN DECREASED [None]
  - HAEMORRHAGE [None]
  - MELAENA [None]
  - RENAL IMPAIRMENT [None]
